FAERS Safety Report 18056325 (Version 2)
Quarter: 2020Q3

REPORT INFORMATION
  Report Type: Report from Study
  Country: RU (occurrence: RU)
  Receive Date: 20200722
  Receipt Date: 20200911
  Transmission Date: 20201103
  Serious: Yes (Life-Threatening, Hospitalization)
  Sender: FDA-Public Use
  Company Number: RU-ASTRAZENECA-2020SE89303

PATIENT
  Age: 69 Year
  Sex: Female
  Weight: 94.2 kg

DRUGS (9)
  1. ARGOSULFAN [Concomitant]
     Indication: HERPES ZOSTER
     Dosage: THREE TIMES A DAY
     Route: 003
     Dates: start: 20200601
  2. AMOKSIKLAV [Concomitant]
     Active Substance: AMOXICILLIN\CLAVULANATE POTASSIUM
     Indication: HERPES ZOSTER
     Route: 048
     Dates: start: 20200601
  3. ACALABRUTINIB. [Suspect]
     Active Substance: ACALABRUTINIB
     Indication: CHRONIC LYMPHOCYTIC LEUKAEMIA
     Route: 048
     Dates: start: 20200519, end: 20200708
  4. SOTAHEXAL [Concomitant]
     Active Substance: SOTALOL
     Indication: SINUS TACHYCARDIA
     Route: 048
     Dates: start: 2005
  5. ALLOPURINOL. [Concomitant]
     Active Substance: ALLOPURINOL
     Indication: HYPERURICAEMIA
     Route: 048
     Dates: start: 20200422
  6. VALACICLOVIR [Concomitant]
     Active Substance: VALACYCLOVIR HYDROCHLORIDE
     Indication: HERPES ZOSTER
     Route: 048
     Dates: start: 20200601
  7. SINUPRET [Concomitant]
     Active Substance: DIETARY SUPPLEMENT\HERBALS
     Indication: VASOMOTOR RHINITIS
     Route: 048
     Dates: start: 2019
  8. MICARDIS PLUS [Concomitant]
     Active Substance: HYDROCHLOROTHIAZIDE\TELMISARTAN
     Indication: HYPERTENSIVE HEART DISEASE
     Route: 048
     Dates: start: 2010
  9. NASONEX [Concomitant]
     Active Substance: MOMETASONE FUROATE
     Indication: VASOMOTOR RHINITIS
     Route: 045
     Dates: start: 2015

REACTIONS (1)
  - Pneumonia viral [Unknown]

NARRATIVE: CASE EVENT DATE: 20200611
